FAERS Safety Report 19069350 (Version 1)
Quarter: 2021Q1

REPORT INFORMATION
  Report Type: Spontaneous
  Country: CA (occurrence: CA)
  Receive Date: 20210329
  Receipt Date: 20210329
  Transmission Date: 20210420
  Serious: Yes (Other)
  Sender: FDA-Public Use
  Company Number: CA-SAMSUNG BIOEPIS-SB-2021-07835

PATIENT
  Age: 45 Year
  Sex: Female
  Weight: 109 kg

DRUGS (1)
  1. INFLIXIMAB [Suspect]
     Active Substance: INFLIXIMAB
     Indication: ANKYLOSING SPONDYLITIS
     Route: 042

REACTIONS (7)
  - Heart rate increased [Unknown]
  - Pruritus [Unknown]
  - Blood pressure increased [Unknown]
  - Chest discomfort [Unknown]
  - Discomfort [Unknown]
  - Off label use [Unknown]
  - Chest pain [Unknown]
